FAERS Safety Report 9416880 (Version 1)
Quarter: 2013Q3

REPORT INFORMATION
  Report Type: Spontaneous
  Country: US (occurrence: None)
  Receive Date: 20130719
  Receipt Date: 20130719
  Transmission Date: 20140515
  Serious: Yes (Death)
  Sender: FDA-Public Use
  Company Number: 2013DEPUS00541

PATIENT
  Age: 69 Year
  Sex: Male

DRUGS (10)
  1. DEPOCYTE [Suspect]
     Route: 037
     Dates: end: 2010
  2. DEPOCYTE [Suspect]
     Indication: WALDENSTROM^S MACROGLOBULINAEMIA
     Route: 037
     Dates: end: 2010
  3. METHOTREXATE SODIUM (METHOTREXATE SODIUM) [Suspect]
     Dosage: 3.5 G/M2
     Route: 042
     Dates: start: 2009
  4. METHOTREXATE SODIUM (METHOTREXATE SODIUM) [Suspect]
     Indication: WALDENSTROM^S MACROGLOBULINAEMIA
     Dosage: 3.5 G/M2
     Route: 042
     Dates: start: 2009
  5. BENDAMUSTINE (BENDAMUSTINE) (BENDAMUSTINE) [Suspect]
     Dates: start: 2009
  6. BENDAMUSTINE (BENDAMUSTINE) (BENDAMUSTINE) [Suspect]
     Indication: WALDENSTROM^S MACROGLOBULINAEMIA
     Dates: start: 2009
  7. RITUXIMAB (RITUXIMAB) [Suspect]
     Dates: start: 2009
  8. RITUXIMAB (RITUXIMAB) [Suspect]
     Indication: WALDENSTROM^S MACROGLOBULINAEMIA
     Dates: start: 2009
  9. PREDNISOLONE ACETATE [Concomitant]
  10. CYCLOPHOSPHAMIDE (CYCLOPHOSPHAMIDE) [Concomitant]

REACTIONS (4)
  - Brain injury [None]
  - Encephalopathy [None]
  - Neurotoxicity [None]
  - Respiratory tract infection [None]
